FAERS Safety Report 13767960 (Version 1)
Quarter: 2017Q3

REPORT INFORMATION
  Report Type: Spontaneous
  Country: US (occurrence: US)
  Receive Date: 20170719
  Receipt Date: 20170719
  Transmission Date: 20171127
  Serious: Yes (Other)
  Sender: FDA-Public Use
  Company Number: US-SUPERNUS PHARMACEUTICALS, INC.-2017SUP00174

PATIENT
  Sex: Male

DRUGS (3)
  1. OXTELLAR XR [Suspect]
     Active Substance: OXCARBAZEPINE
     Dosage: 600 MG, 2X/DAY
     Dates: start: 2017
  2. OXTELLAR XR [Suspect]
     Active Substance: OXCARBAZEPINE
     Dosage: 1 UNK, 1X/DAY PLUS 150 MG 2 X PER DAY
     Dates: end: 2017
  3. OXTELLAR XR [Suspect]
     Active Substance: OXCARBAZEPINE
     Dosage: 1 TABLETS, 2X/DAY PLUS A 600 MG
     Dates: end: 2017

REACTIONS (1)
  - Seizure [Unknown]
